FAERS Safety Report 17290272 (Version 2)
Quarter: 2020Q1

REPORT INFORMATION
  Report Type: Spontaneous
  Country: SK (occurrence: SK)
  Receive Date: 20200121
  Receipt Date: 20200302
  Transmission Date: 20200409
  Serious: Yes (Hospitalization, Other)
  Sender: FDA-Public Use
  Company Number: SK-ABBVIE-20K-260-3238276-00

PATIENT
  Age: 72 Year
  Sex: Male

DRUGS (1)
  1. HUMIRA [Suspect]
     Active Substance: ADALIMUMAB
     Indication: PSORIASIS
     Route: 058
     Dates: start: 201901

REACTIONS (6)
  - Cardiac failure [Not Recovered/Not Resolved]
  - Hypokinesia [Unknown]
  - Bradycardia [Unknown]
  - Post procedural complication [Unknown]
  - Myocardial infarction [Recovered/Resolved with Sequelae]
  - Hypotension [Unknown]

NARRATIVE: CASE EVENT DATE: 20191123
